FAERS Safety Report 9110242 (Version 2)
Quarter: 2013Q1

REPORT INFORMATION
  Report Type: Spontaneous
  Country: FI (occurrence: FI)
  Receive Date: 20130222
  Receipt Date: 20130305
  Transmission Date: 20140127
  Serious: Yes (Life-Threatening, Hospitalization)
  Sender: FDA-Public Use
  Company Number: FI-B.I. PHARMACEUTICALS,INC./RIDGEFIELD-2013-SW-00105SF

PATIENT
  Age: 24 Year
  Sex: Male

DRUGS (2)
  1. PRADAXA [Suspect]
     Indication: LIGAMENT OPERATION
     Dosage: STRENGTH: 110 MG
     Dates: start: 2010, end: 2010
  2. PRADAXA [Suspect]
     Dosage: 4400 MG
     Dates: start: 20130209, end: 20130209

REACTIONS (3)
  - Overdose [Recovered/Resolved]
  - Suicide attempt [Recovered/Resolved]
  - Off label use [Unknown]
